FAERS Safety Report 7395158-9 (Version None)
Quarter: 2011Q2

REPORT INFORMATION
  Report Type: 
  Country: None (occurrence: None)
  Receive Date: 20110405
  Receipt Date: 20110324
  Transmission Date: 20111010
  Serious: Yes (Other)
  Sender: FDA-Public Use
  Company Number: PHHY2010DE03619

PATIENT
  Sex: Male
  Weight: 111 kg

DRUGS (3)
  1. ANGIOTENSIN II ANTAGONISTS [Concomitant]
  2. RASILEZ [Suspect]
     Indication: HYPERTENSION
     Dosage: 150 MG, PER DAY
     Route: 048
     Dates: start: 20080812, end: 20090305
  3. RASILEZ HCT [Suspect]
     Indication: HYPERTENSION
     Dosage: 1 DF (300/25 MG) PER DAY
     Route: 048
     Dates: start: 20090305, end: 20091124

REACTIONS (7)
  - OSTEONECROSIS [None]
  - SKELETAL INJURY [None]
  - STRESS [None]
  - ARTHRALGIA [None]
  - FRACTURE [None]
  - MENISCAL DEGENERATION [None]
  - EFFUSION [None]
